FAERS Safety Report 5317529-4 (Version None)
Quarter: 2007Q2

REPORT INFORMATION
  Report Type: 
  Country: None (occurrence: None)
  Receive Date: 20070507
  Receipt Date: 20070425
  Transmission Date: 20071010
  Serious: Yes (Other)
  Sender: FDA-Public Use
  Company Number: PHBS2007ES03632

PATIENT
  Age: 66 Year
  Sex: Male

DRUGS (3)
  1. MITEN [Suspect]
     Indication: HYPERTENSION
     Dosage: 2 TABLET/DAY
     Route: 048
  2. MITEN PLUS [Suspect]
     Dosage: 160 MG, Q12H
     Route: 048
  3. MISOPROSTOL [Concomitant]
     Dosage: 5 MG, UNK
     Dates: start: 20050818

REACTIONS (2)
  - ECCHYMOSIS [None]
  - LEUKOCYTOCLASTIC VASCULITIS [None]
